FAERS Safety Report 8764613 (Version 3)
Quarter: 2013Q1

REPORT INFORMATION
  Report Type: Spontaneous
  Country: US (occurrence: US)
  Receive Date: 20120831
  Receipt Date: 20130308
  Transmission Date: 20140127
  Serious: No
  Sender: FDA-Public Use
  Company Number: US-ASTRAZENECA-2012SE57915

PATIENT
  Age: 55 Year
  Sex: Female
  Weight: 91.6 kg

DRUGS (12)
  1. NEXIUM [Suspect]
     Indication: GASTROOESOPHAGEAL REFLUX DISEASE
     Route: 048
     Dates: start: 2003
  2. SYMBICORT PMDI [Suspect]
     Indication: CHRONIC OBSTRUCTIVE PULMONARY DISEASE
     Dosage: 160 MCG, 1 PUFF, IN THE EVENING, TWO TIMES A DAY
     Route: 055
     Dates: start: 201301, end: 201301
  3. PENICILLIN [Suspect]
     Route: 065
  4. ZOLOFT [Concomitant]
  5. ZOCOR [Concomitant]
     Indication: BLOOD CHOLESTEROL ABNORMAL
  6. OXYCODONE [Concomitant]
  7. NYSTATIN [Concomitant]
  8. ADVAIR [Concomitant]
  9. MORPHINE [Concomitant]
     Indication: BACK PAIN
  10. VALIUM [Concomitant]
     Indication: ANXIETY
  11. NEURONTIN [Concomitant]
     Indication: NEURALGIA
  12. TIZANIDINE [Concomitant]
     Indication: HYPOTONIA

REACTIONS (7)
  - Nerve injury [Not Recovered/Not Resolved]
  - Feeling abnormal [Unknown]
  - Irritable bowel syndrome [Unknown]
  - Dyspnoea [Recovered/Resolved]
  - Malaise [Unknown]
  - Oral candidiasis [Unknown]
  - Drug dose omission [Unknown]
